FAERS Safety Report 8194197-8 (Version None)
Quarter: 2012Q1

REPORT INFORMATION
  Report Type: 
  Country: None (occurrence: None)
  Receive Date: 20120308
  Receipt Date: 20120229
  Transmission Date: 20120608
  Serious: Yes (Hospitalization)
  Sender: FDA-Public Use
  Company Number: FR-TEVA-326025ISR

PATIENT
  Sex: Male

DRUGS (3)
  1. IRINOTECAN HCL [Suspect]
     Indication: METASTATIC GASTRIC CANCER
     Route: 042
     Dates: start: 20120103, end: 20120103
  2. FLUOROURACIL [Suspect]
     Indication: METASTATIC GASTRIC CANCER
     Dosage: 5GR/100ML
     Route: 042
     Dates: start: 20120103, end: 20120103
  3. LEUCOVORIN CALCIUM [Suspect]
     Indication: METASTATIC GASTRIC CANCER
     Route: 042
     Dates: start: 20120103, end: 20120103

REACTIONS (1)
  - HYPERTHERMIA [None]
